FAERS Safety Report 18219981 (Version 3)
Quarter: 2020Q4

REPORT INFORMATION
  Report Type: Report from Study
  Country: None (occurrence: CA)
  Receive Date: 20200901
  Receipt Date: 20201225
  Transmission Date: 20210113
  Serious: Yes (Hospitalization)
  Sender: FDA-Public Use
  Company Number: CA-ABBVIE-20K-028-3547690-00

PATIENT
  Age: 77 Year
  Sex: Male

DRUGS (3)
  1. LUPRON DEPOT [Suspect]
     Active Substance: LEUPROLIDE ACETATE
     Route: 030
  2. LUPRON DEPOT [Suspect]
     Active Substance: LEUPROLIDE ACETATE
     Indication: PROSTATE CANCER
     Route: 030
     Dates: start: 20200504
  3. CEPHALEXIN. [Concomitant]
     Active Substance: CEPHALEXIN
     Indication: SEPSIS

REACTIONS (3)
  - Sepsis [Not Recovered/Not Resolved]
  - Malaise [Unknown]
  - Prostatic specific antigen increased [Unknown]

NARRATIVE: CASE EVENT DATE: 2020
